FAERS Safety Report 9859737 (Version 2)
Quarter: 2014Q1

REPORT INFORMATION
  Report Type: Spontaneous
  Country: DE (occurrence: DE)
  Receive Date: 20140131
  Receipt Date: 20140131
  Transmission Date: 20141002
  Serious: Yes (Hospitalization, Other)
  Sender: FDA-Public Use
  Company Number: DE-AMGEN-GBRSP2013068515

PATIENT
  Age: 83 Year
  Sex: Female

DRUGS (1)
  1. PROLIA [Suspect]
     Indication: OSTEOPOROSIS POSTMENOPAUSAL
     Dosage: UNK UNK, Q6MO
     Route: 065
     Dates: start: 20121206

REACTIONS (24)
  - Diverticulitis [Unknown]
  - Abdominal adhesions [Unknown]
  - Type 2 diabetes mellitus [Unknown]
  - Diabetic nephropathy [Unknown]
  - Renal failure chronic [Unknown]
  - Renal cyst [Unknown]
  - General physical health deterioration [Recovering/Resolving]
  - Hyperthyroidism [Unknown]
  - Spinal pain [Unknown]
  - Mitral valve incompetence [Unknown]
  - Left ventricular hypertrophy [Unknown]
  - Supraventricular extrasystoles [Unknown]
  - Pleural effusion [Unknown]
  - Pulmonary hypertension [Unknown]
  - Tricuspid valve incompetence [Unknown]
  - Ascites [Unknown]
  - Pancreatitis acute [Recovering/Resolving]
  - Dilatation atrial [Unknown]
  - Abdominal pain upper [Recovered/Resolved]
  - Dyspnoea exertional [Recovering/Resolving]
  - Dry skin [Unknown]
  - Fatigue [Recovering/Resolving]
  - Gastrointestinal hypomotility [Unknown]
  - Gastrointestinal hypermotility [Unknown]
